FAERS Safety Report 25226547 (Version 2)
Quarter: 2025Q2

REPORT INFORMATION
  Report Type: Spontaneous
  Country: PT (occurrence: PT)
  Receive Date: 20250422
  Receipt Date: 20250506
  Transmission Date: 20250716
  Serious: Yes (Hospitalization)
  Sender: MYLAN
  Company Number: PT-ORESUND-25OPAJY0271P

PATIENT
  Age: 39 Year
  Sex: Female

DRUGS (28)
  1. METHOTREXATE [Suspect]
     Active Substance: METHOTREXATE
     Indication: Plasma cell mastitis
     Dosage: 5 MILLIGRAM, QW (5 MG ONCE PER WEEK)
  2. METHOTREXATE [Suspect]
     Active Substance: METHOTREXATE
     Dosage: 5 MILLIGRAM, QW (5 MG ONCE PER WEEK)
  3. METHOTREXATE [Suspect]
     Active Substance: METHOTREXATE
     Dosage: 5 MILLIGRAM, QW (5 MG ONCE PER WEEK)
     Route: 065
  4. METHOTREXATE [Suspect]
     Active Substance: METHOTREXATE
     Dosage: 5 MILLIGRAM, QW (5 MG ONCE PER WEEK)
     Route: 065
  5. METHOTREXATE [Suspect]
     Active Substance: METHOTREXATE
     Dosage: 10 MILLIGRAM, QW (10 MG ONCE PER WEEK)
  6. METHOTREXATE [Suspect]
     Active Substance: METHOTREXATE
     Dosage: 10 MILLIGRAM, QW (10 MG ONCE PER WEEK)
  7. METHOTREXATE [Suspect]
     Active Substance: METHOTREXATE
     Dosage: 10 MILLIGRAM, QW (10 MG ONCE PER WEEK)
     Route: 065
  8. METHOTREXATE [Suspect]
     Active Substance: METHOTREXATE
     Dosage: 10 MILLIGRAM, QW (10 MG ONCE PER WEEK)
     Route: 065
  9. AMOXICILLIN\CLOXACILLIN [Suspect]
     Active Substance: AMOXICILLIN\CLOXACILLIN
     Indication: Antibiotic therapy
     Dosage: UNK, Q2W
  10. AMOXICILLIN\CLOXACILLIN [Suspect]
     Active Substance: AMOXICILLIN\CLOXACILLIN
     Dosage: UNK, Q2W
     Route: 065
  11. AMOXICILLIN\CLOXACILLIN [Suspect]
     Active Substance: AMOXICILLIN\CLOXACILLIN
     Dosage: UNK, Q2W
     Route: 065
  12. AMOXICILLIN\CLOXACILLIN [Suspect]
     Active Substance: AMOXICILLIN\CLOXACILLIN
     Dosage: UNK, Q2W
  13. PIPERACILLIN SODIUM\TAZOBACTAM SODIUM [Suspect]
     Active Substance: PIPERACILLIN SODIUM\TAZOBACTAM SODIUM
     Indication: Staphylococcal infection
  14. PIPERACILLIN SODIUM\TAZOBACTAM SODIUM [Suspect]
     Active Substance: PIPERACILLIN SODIUM\TAZOBACTAM SODIUM
     Route: 065
  15. PIPERACILLIN SODIUM\TAZOBACTAM SODIUM [Suspect]
     Active Substance: PIPERACILLIN SODIUM\TAZOBACTAM SODIUM
     Route: 065
  16. PIPERACILLIN SODIUM\TAZOBACTAM SODIUM [Suspect]
     Active Substance: PIPERACILLIN SODIUM\TAZOBACTAM SODIUM
  17. PREDNISOLONE [Suspect]
     Active Substance: PREDNISOLONE
     Indication: Mastitis
     Dosage: 30 MILLIGRAM, QD (30 MG PER DAY)
  18. PREDNISOLONE [Suspect]
     Active Substance: PREDNISOLONE
     Indication: Plasma cell mastitis
     Dosage: 30 MILLIGRAM, QD (30 MG PER DAY)
     Route: 065
  19. PREDNISOLONE [Suspect]
     Active Substance: PREDNISOLONE
     Dosage: 30 MILLIGRAM, QD (30 MG PER DAY)
     Route: 065
  20. PREDNISOLONE [Suspect]
     Active Substance: PREDNISOLONE
     Dosage: 30 MILLIGRAM, QD (30 MG PER DAY)
  21. AMOXICILLIN [Concomitant]
     Active Substance: AMOXICILLIN
  22. AMOXICILLIN [Concomitant]
     Active Substance: AMOXICILLIN
     Route: 065
  23. AMOXICILLIN [Concomitant]
     Active Substance: AMOXICILLIN
     Route: 065
  24. AMOXICILLIN [Concomitant]
     Active Substance: AMOXICILLIN
  25. CLINDAMYCIN [Concomitant]
     Active Substance: CLINDAMYCIN
  26. CLINDAMYCIN [Concomitant]
     Active Substance: CLINDAMYCIN
     Route: 065
  27. CLINDAMYCIN [Concomitant]
     Active Substance: CLINDAMYCIN
     Route: 065
  28. CLINDAMYCIN [Concomitant]
     Active Substance: CLINDAMYCIN

REACTIONS (3)
  - Drug ineffective [Unknown]
  - Maternal exposure during pregnancy [Unknown]
  - Off label use [Unknown]
